FAERS Safety Report 13116013 (Version 1)
Quarter: 2017Q1

REPORT INFORMATION
  Report Type: Spontaneous
  Country: US (occurrence: US)
  Receive Date: 20170116
  Receipt Date: 20170116
  Transmission Date: 20170428
  Serious: Yes (Death)
  Sender: FDA-Public Use
  Company Number: US-ALVOGEN-2017-ALVOGEN-091078

PATIENT
  Age: 41 Year
  Sex: Male

DRUGS (7)
  1. CODEINE PHOSPHATE/GUAIFENESIN/PSEUDOEPHEDRINE HYDROCHLORIDE [Suspect]
     Active Substance: CODEINE PHOSPHATE\GUAIFENESIN\PSEUDOEPHEDRINE HYDROCHLORIDE
     Indication: SUICIDE ATTEMPT
     Route: 048
  2. FENTANYL. [Suspect]
     Active Substance: FENTANYL
     Indication: SUICIDE ATTEMPT
     Route: 048
  3. DEXMEDETOMIDINE. [Suspect]
     Active Substance: DEXMEDETOMIDINE
     Indication: SUICIDE ATTEMPT
     Route: 048
  4. ACICLOVIR [Suspect]
     Active Substance: ACYCLOVIR
     Indication: SUICIDE ATTEMPT
     Route: 048
  5. AMITRIPTYLINE [Suspect]
     Active Substance: AMITRIPTYLINE
     Indication: SUICIDE ATTEMPT
     Route: 048
  6. TOPIRAMATE. [Suspect]
     Active Substance: TOPIRAMATE
     Indication: SUICIDE ATTEMPT
     Route: 048
  7. GABAPENTIN. [Suspect]
     Active Substance: GABAPENTIN
     Indication: SUICIDE ATTEMPT
     Route: 048

REACTIONS (1)
  - Completed suicide [Fatal]
